FAERS Safety Report 4880731-X (Version None)
Quarter: 2006Q1

REPORT INFORMATION
  Report Type: 
  Country: None (occurrence: None)
  Receive Date: 20060113
  Receipt Date: 20050317
  Transmission Date: 20060701
  Serious: Yes (Hospitalization, Disabling)
  Sender: FDA-Public Use
  Company Number: US-MERCK-0503USA03405

PATIENT
  Age: 50 Year
  Sex: Male
  Weight: 145 kg

DRUGS (21)
  1. VIOXX [Suspect]
     Indication: ARTHRITIS
     Route: 048
     Dates: start: 19990101, end: 20041001
  2. VIOXX [Suspect]
     Route: 048
     Dates: start: 19990101, end: 20041001
  3. VIOXX [Suspect]
     Indication: ARTHRALGIA
     Route: 048
     Dates: start: 19990101, end: 20041001
  4. VIOXX [Suspect]
     Route: 048
     Dates: start: 19990101, end: 20041001
  5. AVAPRO [Concomitant]
     Route: 065
  6. ACEON [Concomitant]
     Route: 065
  7. BUMEX [Concomitant]
     Route: 065
  8. THEOPHYLLINE [Concomitant]
     Route: 065
  9. FERROUS SULFATE [Concomitant]
     Route: 065
  10. VICODIN [Concomitant]
     Route: 065
  11. ALBUTEROL [Concomitant]
     Route: 065
  12. FLOVENT [Concomitant]
     Route: 065
  13. SOMA [Concomitant]
     Route: 065
  14. MONOPRIL [Concomitant]
     Route: 065
  15. PHENERGAN EXPECTORANT W/ CODEINE [Concomitant]
     Route: 065
  16. ASPIRIN [Concomitant]
     Route: 065
  17. PLAVIX [Concomitant]
     Route: 065
  18. RESTORIL [Concomitant]
     Route: 065
  19. NORVASC [Concomitant]
     Route: 065
  20. VERAPAMIL [Concomitant]
     Route: 065
  21. ALBUTEROL [Concomitant]
     Route: 065

REACTIONS (2)
  - CEREBROVASCULAR ACCIDENT [None]
  - GASTROOESOPHAGEAL REFLUX DISEASE [None]
